FAERS Safety Report 7809198-6 (Version None)
Quarter: 2011Q4

REPORT INFORMATION
  Report Type: 
  Country: None (occurrence: None)
  Receive Date: 20111012
  Receipt Date: 20110929
  Transmission Date: 20120403
  Serious: Yes (Hospitalization)
  Sender: FDA-Public Use
  Company Number: JP-UCBSA-003576

PATIENT
  Age: 68 Year
  Sex: Female

DRUGS (22)
  1. RABEPRAZOLE SODIUM [Concomitant]
     Indication: GASTRIC ULCER
     Route: 048
     Dates: start: 20090301
  2. CANDESARTAN CILEXETIL [Concomitant]
     Dates: start: 20081001
  3. CERTOLIZUMAB PEGOL [Suspect]
     Indication: RHEUMATOID ARTHRITIS
     Route: 058
     Dates: start: 20091001, end: 20100527
  4. CERTOLIZUMAB PEGOL [Suspect]
     Route: 058
     Dates: start: 20100722
  5. METHOTREXATE [Concomitant]
     Dates: start: 20090417
  6. MOSAPRIDE CITRATE HYDRATE [Concomitant]
     Indication: GASTRIC ULCER
     Dates: start: 20090301
  7. SCOPOLAMINE BUTYLBROMIDE [Concomitant]
     Indication: GASTRIC ULCER
     Dates: start: 20090301
  8. CANDESARTAN CILEXETIL [Concomitant]
     Indication: BLOOD PRESSURE INCREASED
     Dates: start: 20081001
  9. RABEPRAZOLE SODIUM [Concomitant]
     Indication: PROPHYLAXIS AGAINST GASTROINTESTINAL ULCER
     Route: 048
     Dates: start: 20090301
  10. ISONIAZID [Concomitant]
     Dates: start: 20090603, end: 20100318
  11. VALPROATE SODIUM [Concomitant]
     Dates: start: 20100318
  12. TIQUIZIUM BROMIDE [Concomitant]
     Indication: PROPHYLAXIS AGAINST GASTROINTESTINAL ULCER
     Route: 048
     Dates: start: 20090301, end: 20090603
  13. CELECOXIB [Concomitant]
     Dates: start: 20090416
  14. PREDNISOLONE FARNESYLATE [Concomitant]
     Dosage: PROPER DOSE
     Dates: start: 20090416
  15. METHOTREXATE [Concomitant]
     Indication: RHEUMATOID ARTHRITIS
     Route: 048
     Dates: start: 20070406, end: 20090410
  16. LOXOPROFEN SODIUM [Concomitant]
     Indication: RHEUMATOID ARTHRITIS
     Route: 048
     Dates: start: 20070101, end: 20090101
  17. DICLOFENAC [Concomitant]
     Route: 054
     Dates: start: 20090301
  18. REBAMIPIDE [Concomitant]
     Indication: GASTRIC ULCER
     Route: 048
     Dates: start: 20090301, end: 20090603
  19. REBAMIPIDE [Concomitant]
     Indication: PROPHYLAXIS AGAINST GASTROINTESTINAL ULCER
     Route: 048
     Dates: start: 20090301, end: 20090603
  20. FOLIC ACID [Concomitant]
     Dates: start: 20090419
  21. KETOPROFEN [Concomitant]
     Dosage: ONE DOSAGE FORM
     Dates: start: 20090416
  22. BETAMETHASONE [Concomitant]
     Dates: start: 20100319

REACTIONS (2)
  - CONTUSION [None]
  - MENINGIOMA [None]
